FAERS Safety Report 20363123 (Version 1)
Quarter: 2022Q1

REPORT INFORMATION
  Report Type: Spontaneous
  Country: US (occurrence: US)
  Receive Date: 20220121
  Receipt Date: 20220121
  Transmission Date: 20220423
  Serious: No
  Sender: FDA-Public Use
  Company Number: US-PFIZER INC-202200101097

PATIENT
  Age: 59 Year
  Sex: Female
  Weight: 74.84 kg

DRUGS (7)
  1. PAXLOVID [Suspect]
     Active Substance: NIRMATRELVIR\RITONAVIR
     Indication: COVID-19
     Dosage: THREE TABLETS TWICE A DAY BY MOUTH
     Route: 048
     Dates: start: 20220117
  2. NORTRIPTYLINE [Concomitant]
     Active Substance: NORTRIPTYLINE
     Indication: Vestibular migraine
     Dosage: UNK
     Dates: start: 2020
  3. CYMBALTA [Concomitant]
     Active Substance: DULOXETINE HYDROCHLORIDE
     Indication: Fibromyalgia
     Dosage: 30 MG, 1X/DAY
     Route: 048
  4. CYMBALTA [Concomitant]
     Active Substance: DULOXETINE HYDROCHLORIDE
     Indication: Depression
  5. WELLBUTRIN [Concomitant]
     Active Substance: BUPROPION HYDROCHLORIDE
     Indication: Depression
     Dosage: 150 MG, 1X/DAY
     Route: 048
     Dates: start: 2021
  6. REMICADE [Concomitant]
     Active Substance: INFLIXIMAB
     Indication: Colitis ulcerative
     Dosage: UNK, ( INFUSION EVERY TWO MONTHS)
     Dates: start: 2005
  7. PREGABALIN [Concomitant]
     Active Substance: PREGABALIN

REACTIONS (2)
  - Abdominal pain [Unknown]
  - Headache [Unknown]

NARRATIVE: CASE EVENT DATE: 20220117
